FAERS Safety Report 8710057 (Version 3)
Quarter: 2012Q4

REPORT INFORMATION
  Report Type: Report from Study
  Country: JP (occurrence: JP)
  Receive Date: 20120806
  Receipt Date: 20121030
  Transmission Date: 20130627
  Serious: Yes (Hospitalization, Other)
  Sender: FDA-Public Use
  Company Number: JP-ABBOTT-12P-087-0962127-00

PATIENT
  Age: 62 Year
  Sex: Male

DRUGS (5)
  1. KALETRA TABLETS [Suspect]
     Indication: HIV INFECTION
     Route: 048
  2. TENOFOVIR DISOPROXIL FUMARATE [Concomitant]
     Indication: HIV INFECTION
     Route: 048
  3. RALTEGRAVIR POTASSIUM [Concomitant]
     Indication: HIV INFECTION
     Route: 048
  4. ALLOPURINOL [Concomitant]
     Indication: HYPERURICAEMIA
  5. CANDESARTAN CILEXETIL [Concomitant]
     Indication: HYPERTENSION

REACTIONS (2)
  - Large intestine polyp [Recovering/Resolving]
  - Iron deficiency anaemia [Recovered/Resolved]
